FAERS Safety Report 5208359-2 (Version None)
Quarter: 2007Q1

REPORT INFORMATION
  Report Type: 
  Country: None (occurrence: None)
  Receive Date: 20070110
  Receipt Date: 20070110
  Transmission Date: 20070707
  Serious: Yes (Hospitalization)
  Sender: FDA-Public Use
  Company Number: None

PATIENT
  Age: 70 Year
  Sex: Female
  Weight: 46.7205 kg

DRUGS (2)
  1. AMIODARONE HCL [Suspect]
     Dosage: AMIODARONE-1050 MG OVER 24 HR- ONCE IV DRIP
     Route: 041
     Dates: start: 20061230, end: 20070102
  2. AMIODARONE HCL [Suspect]
     Dosage: AMIODRONE 200 MG BID PO
     Route: 048

REACTIONS (1)
  - THROMBOCYTOPENIA [None]
